FAERS Safety Report 19612920 (Version 2)
Quarter: 2024Q4

REPORT INFORMATION
  Report Type: Report from Study
  Country: AT (occurrence: AT)
  Receive Date: 20210727
  Receipt Date: 20241231
  Transmission Date: 20250114
  Serious: Yes (Other)
  Sender: TEVA
  Company Number: AT-EMA-DD-20210714-KAKWANI_D-111907

PATIENT
  Age: 82 Year
  Sex: Female
  Weight: 70 kg

DRUGS (15)
  1. PACLITAXEL [Suspect]
     Active Substance: PACLITAXEL
     Indication: HER2 positive breast cancer
     Dosage: DOSAGE TEXT: FREQUENCY: WEEKLY MOST RECENT DOSE PRIOR TO THE EVENT: 21/AUG/2019:UNIT DOSE:80MG/M2
     Route: 042
     Dates: start: 20190731, end: 20190814
  2. NEBIVOLOL HYDROCHLORIDE [Concomitant]
     Active Substance: NEBIVOLOL HYDROCHLORIDE
     Indication: Product used for unknown indication
     Dosage: DOSAGE TEXT: ONGOING = CHECKED
     Route: 065
     Dates: start: 20170305
  3. RAMIPRIL [Concomitant]
     Active Substance: RAMIPRIL
     Indication: Product used for unknown indication
     Dosage: DOSAGE TEXT: ONGOING = NOT CHECKED
     Route: 065
     Dates: start: 20190711, end: 20200618
  4. HYDROCHLOROTHIAZIDE [Concomitant]
     Active Substance: HYDROCHLOROTHIAZIDE
     Indication: Product used for unknown indication
     Dosage: DOSAGE TEXT: ONGOING = NOT CHECKED
     Route: 065
     Dates: start: 20190711, end: 20200616
  5. ZOFRAN [Concomitant]
     Active Substance: ONDANSETRON HYDROCHLORIDE
     Indication: Product used for unknown indication
     Route: 065
     Dates: start: 20170726, end: 20200715
  6. METHIMAZOLE [Concomitant]
     Active Substance: METHIMAZOLE
     Indication: Product used for unknown indication
     Dosage: DOSAGE TEXT: ONGOING = NOT CHECKED
     Route: 065
     Dates: start: 20191211, end: 20200618
  7. FUROSEMIDE [Concomitant]
     Active Substance: FUROSEMIDE
     Indication: Product used for unknown indication
     Dosage: DOSAGE TEXT: ONGOING = NOT CHECKED
     Route: 065
     Dates: start: 20191211, end: 20200305
  8. ASPIRIN [Concomitant]
     Active Substance: ASPIRIN
     Indication: Product used for unknown indication
     Dosage: DOSAGE TEXT: ONGOING = CHECKED
     Route: 065
     Dates: start: 20170305
  9. TRASTUZUMAB [Suspect]
     Active Substance: TRASTUZUMAB
     Indication: HER2 positive breast cancer
     Dosage: DOSAGE TEXT: FREQUENCY: OTHER MOST RECENT DOSE PRIOR TO THE EVENT: 30/OCT/2019:UNIT DOSE:8MG/M2
     Route: 042
     Dates: start: 20190731, end: 20190731
  10. LOPERAMIDE [Concomitant]
     Active Substance: LOPERAMIDE
     Indication: Diarrhoea
     Dosage: DOSAGE TEXT: ONGOING = NOT CHECKED
     Route: 065
     Dates: start: 20190821, end: 20191030
  11. VILDAGLIPTIN [Concomitant]
     Active Substance: VILDAGLIPTIN
     Indication: Product used for unknown indication
     Dosage: DOSAGE TEXT: ONGOING = CHECKED
     Route: 065
  12. PERTUZUMAB [Suspect]
     Active Substance: PERTUZUMAB
     Indication: HER2 positive breast cancer
     Dosage: DOSAGE TEXT: FREQUENCY: OTHER MOST RECENT DOSE PRIOR TO THE EVENT: 07/AUG/2019:UNIT DOSE:840MILLI...
     Route: 042
     Dates: start: 20190731, end: 20190731
  13. LOVENOX [Concomitant]
     Active Substance: ENOXAPARIN SODIUM
     Indication: Product used for unknown indication
     Dosage: DOSAGE TEXT: ONGOING = NOT CHECKED
     Route: 065
     Dates: start: 20191008, end: 20191218
  14. ERYTHROPOIETIN [Concomitant]
     Active Substance: ERYTHROPOIETIN
     Indication: Product used for unknown indication
     Dosage: DOSAGE TEXT: ONGOING = NOT CHECKED
     Route: 065
     Dates: start: 20191002, end: 20191218
  15. TAXOL [Suspect]
     Active Substance: PACLITAXEL
     Indication: HER2 positive breast cancer
     Route: 042
     Dates: start: 20190821

REACTIONS (1)
  - Polyneuropathy [Recovered/Resolved]

NARRATIVE: CASE EVENT DATE: 20191120
